FAERS Safety Report 4837601-2 (Version None)
Quarter: 2005Q4

REPORT INFORMATION
  Report Type: 
  Country: None (occurrence: None)
  Receive Date: 20051128
  Receipt Date: 20050712
  Transmission Date: 20060501
  Serious: Yes (Hospitalization)
  Sender: FDA-Public Use
  Company Number: JP-SOLVAY-00305002275

PATIENT
  Age: 8522 Day
  Sex: Male
  Weight: 75 kg

DRUGS (5)
  1. BIOFERMIN [Concomitant]
     Indication: ABDOMINAL DISTENSION
     Dosage: DAILY DOSE: 3 DOSAGE FORM
     Route: 048
     Dates: start: 20050620
  2. LUVOX [Suspect]
     Indication: DEPRESSION
     Dosage: DAILY DOSE:  UNKNOWN
     Route: 048
  3. LUVOX [Suspect]
     Dosage: DAILY DOSE: 75 MILLIGRAM(S)
     Route: 048
     Dates: start: 20050502, end: 20050101
  4. LUVOX [Suspect]
     Dosage: DAILY DOSE: 100 MILLIGRAM(S)
     Route: 048
     Dates: start: 20050101, end: 20050712
  5. GANATON [Concomitant]
     Indication: ABDOMINAL DISTENSION
     Dosage: DAILY DOSE: 3 DOSAGE FORM
     Route: 048
     Dates: start: 20050620

REACTIONS (2)
  - CHEST PAIN [None]
  - SEROTONIN SYNDROME [None]
